FAERS Safety Report 8560997-5 (Version None)
Quarter: 2012Q3

REPORT INFORMATION
  Report Type: 
  Country: None (occurrence: None)
  Receive Date: 20120723
  Receipt Date: 20120711
  Transmission Date: 20120928
  Serious: Yes (Other)
  Sender: FDA-Public Use
  Company Number: ACO_31107_2012

PATIENT
  Age: 39 Year
  Sex: Female

DRUGS (16)
  1. GABAPENTIN [Concomitant]
  2. TYSABRI [Concomitant]
  3. LISINOPRIL [Concomitant]
  4. AMPYRA [Suspect]
     Indication: PRODUCT USED FOR UNKNOWN INDICATION
     Dosage: 10 MG, Q 12 HRS, ORAL
     Route: 048
     Dates: start: 20101201, end: 20120101
  5. ZANTAC [Concomitant]
  6. AMANTADINE HCL [Concomitant]
  7. DETROL [Concomitant]
  8. METFORMIN HCL [Concomitant]
  9. TRAZODONE HCL [Concomitant]
  10. CYCLOBENZAPRINE [Concomitant]
  11. COREG [Concomitant]
  12. LASIX [Concomitant]
  13. BACLOFEN [Concomitant]
  14. PROVIGIL [Concomitant]
  15. PROZAC [Concomitant]
  16. VITAMIN D [Concomitant]

REACTIONS (5)
  - RESPIRATORY ARREST [None]
  - MULTIPLE SCLEROSIS RELAPSE [None]
  - GAIT DISTURBANCE [None]
  - DEPRESSION [None]
  - DIZZINESS [None]
